FAERS Safety Report 7348102-4 (Version None)
Quarter: 2011Q1

REPORT INFORMATION
  Report Type: 
  Country: None (occurrence: None)
  Receive Date: 20110302
  Receipt Date: 20090109
  Transmission Date: 20110831
  Serious: Yes (Life-Threatening, Hospitalization)
  Sender: FDA-Public Use
  Company Number: UK-2009-00004

PATIENT
  Age: 84 Year
  Sex: Male
  Weight: 61 kg

DRUGS (7)
  1. FRUSEMIDE (UNKNOWN) [Concomitant]
  2. IPRATROPIUM (INHALANT) [Concomitant]
  3. SIMVASTATIN [Suspect]
     Indication: PROPHYLAXIS
     Dosage: 40 MG (40 MG), ORAL
     Route: 048
     Dates: start: 20081029, end: 20081130
  4. WARFARIN SODIUM [Concomitant]
  5. CO-DYDRAMOL(UNKNOWN) [Concomitant]
  6. SPIRINOLACTONE(UNKNOWN) [Concomitant]
  7. PERINDOPRIL(UNKNOWN) [Concomitant]

REACTIONS (6)
  - DYSPNOEA [None]
  - MOBILITY DECREASED [None]
  - ASTHENIA [None]
  - RHABDOMYOLYSIS [None]
  - CARDIAC FAILURE [None]
  - POLYNEUROPATHY [None]
